FAERS Safety Report 7288987-3 (Version None)
Quarter: 2011Q1

REPORT INFORMATION
  Report Type: 
  Country: None (occurrence: None)
  Receive Date: 20110211
  Receipt Date: 20110201
  Transmission Date: 20110831
  Serious: Yes (Other)
  Sender: FDA-Public Use
  Company Number: PHHY2011GB07766

PATIENT
  Age: 6 Month
  Sex: Male

DRUGS (1)
  1. ATENOLOL [Suspect]
     Indication: HYPERTENSION
     Dosage: 0.5 ML, QD
     Route: 048

REACTIONS (2)
  - CHILLS [None]
  - CYANOSIS [None]
